FAERS Safety Report 22074134 (Version 1)
Quarter: 2023Q1

REPORT INFORMATION
  Report Type: Spontaneous
  Country: IT (occurrence: IT)
  Receive Date: 20230308
  Receipt Date: 20230308
  Transmission Date: 20230418
  Serious: Yes (Death, Other)
  Sender: FDA-Public Use
  Company Number: IT-ROCHE-3285456

PATIENT
  Age: 59 Year
  Sex: Male

DRUGS (4)
  1. TRASTUZUMAB [Suspect]
     Active Substance: TRASTUZUMAB
     Indication: Adenocarcinoma gastric
     Dosage: 6 MILLIGRAM/SQ. METER, SIX CYCLES
     Route: 065
  2. CISPLATIN [Suspect]
     Active Substance: CISPLATIN
     Indication: Adenocarcinoma gastric
     Dosage: 115 MILLIGRAM, SIX CYCLES
     Route: 065
  3. FLUOROURACIL [Concomitant]
     Active Substance: FLUOROURACIL
     Indication: Adenocarcinoma gastric
     Dosage: 4000 MILLIGRAM/SQ. METER
     Route: 065
  4. CARBOPLATIN [Concomitant]
     Active Substance: CARBOPLATIN
     Indication: Adenocarcinoma gastric
     Dosage: 400 MILLIGRAM, LAST THREE CYCLES
     Route: 065

REACTIONS (3)
  - Adenocarcinoma gastric [Fatal]
  - Metastases to meninges [Fatal]
  - Disease progression [Fatal]
